FAERS Safety Report 5590740-3 (Version None)
Quarter: 2008Q1

REPORT INFORMATION
  Report Type: 
  Country: None (occurrence: None)
  Receive Date: 20080114
  Receipt Date: 20080102
  Transmission Date: 20080703
  Serious: Yes (Death)
  Sender: FDA-Public Use
  Company Number: US-PFIZER INC-2008000917

PATIENT
  Sex: Male

DRUGS (1)
  1. VFEND [Suspect]
     Dates: start: 20071223, end: 20071229

REACTIONS (1)
  - LUNG NEOPLASM MALIGNANT [None]
